FAERS Safety Report 21317159 (Version 1)
Quarter: 2022Q3

REPORT INFORMATION
  Report Type: Spontaneous
  Country: US (occurrence: US)
  Receive Date: 20220911
  Receipt Date: 20220911
  Transmission Date: 20221027
  Serious: No
  Sender: FDA-Public Use
  Company Number: US-SA-SAC20220818001271

PATIENT
  Age: 64 Year
  Sex: Female

DRUGS (1)
  1. DUPIXENT [Suspect]
     Active Substance: DUPILUMAB
     Indication: Asthma
     Dosage: 300 MG, QOW
     Route: 058

REACTIONS (6)
  - Joint stiffness [Recovered/Resolved]
  - Sinus disorder [Unknown]
  - Hypersensitivity [Unknown]
  - Sinus operation [Unknown]
  - Dental implantation [Unknown]
  - Dental implant removal [Unknown]

NARRATIVE: CASE EVENT DATE: 20220101
